FAERS Safety Report 9673329 (Version 1)
Quarter: 2013Q4

REPORT INFORMATION
  Report Type: Spontaneous
  Country: US (occurrence: US)
  Receive Date: 20131106
  Receipt Date: 20131106
  Transmission Date: 20140711
  Serious: No
  Sender: FDA-Public Use
  Company Number: US-AMGEN-USASP2013071720

PATIENT
  Age: 55 Year
  Sex: Female

DRUGS (1)
  1. ENBREL [Suspect]
     Indication: RHEUMATOID ARTHRITIS
     Dosage: UNKNOWN WEEKLY
     Route: 065
     Dates: start: 20021201

REACTIONS (2)
  - Rhinorrhoea [Not Recovered/Not Resolved]
  - Bronchitis [Not Recovered/Not Resolved]
